FAERS Safety Report 4930359-8 (Version None)
Quarter: 2006Q1

REPORT INFORMATION
  Report Type: 
  Country: None (occurrence: None)
  Receive Date: 20060302
  Receipt Date: 20051103
  Transmission Date: 20060701
  Serious: Yes (Hospitalization, Congenital Anomaly, Other)
  Sender: FDA-Public Use
  Company Number: US-GLAXOSMITHKLINE-A0594671A

PATIENT
  Sex: Male
  Weight: 3.8 kg

DRUGS (3)
  1. LAMICTAL [Suspect]
     Indication: EPILEPSY
  2. ALDOMET [Concomitant]
     Indication: HYPERTENSION
  3. ALCOHOL [Concomitant]

REACTIONS (7)
  - CONGENITAL URETHRAL ANOMALY [None]
  - CRYPTORCHISM [None]
  - DRUG EXPOSURE DURING PREGNANCY [None]
  - EAGLE BARRETT SYNDROME [None]
  - RENAL DISORDER [None]
  - URETHRAL VALVES [None]
  - VESICOURETERIC REFLUX [None]
